FAERS Safety Report 5775137-5 (Version None)
Quarter: 2008Q2

REPORT INFORMATION
  Report Type: 
  Country: None (occurrence: None)
  Receive Date: 20080616
  Receipt Date: 20080616
  Transmission Date: 20081010
  Serious: Yes (Hospitalization)
  Sender: FDA-Public Use
  Company Number: None

PATIENT
  Sex: Female
  Weight: 71.2147 kg

DRUGS (1)
  1. FLAGYL [Suspect]
     Indication: GASTROENTERITIS
     Dosage: 500MG Q8H IV DRIP
     Route: 041
     Dates: start: 20080609, end: 20080610

REACTIONS (1)
  - RASH [None]
